FAERS Safety Report 13020728 (Version 7)
Quarter: 2022Q3

REPORT INFORMATION
  Report Type: Spontaneous
  Country: FR (occurrence: FR)
  Receive Date: 20161212
  Receipt Date: 20220828
  Transmission Date: 20221026
  Serious: Yes (Death, Other)
  Sender: FDA-Public Use
  Company Number: FR-009507513-1612FRA001989

PATIENT
  Age: 62 Year
  Sex: Male

DRUGS (10)
  1. CASPOFUNGIN ACETATE [Suspect]
     Active Substance: CASPOFUNGIN ACETATE
     Indication: Antifungal prophylaxis
     Dosage: 50 MG, DAILY
     Route: 042
     Dates: start: 20150303, end: 201503
  2. FLUMAZENIL [Concomitant]
     Active Substance: FLUMAZENIL
     Indication: Loss of consciousness
     Dosage: UNK
     Route: 042
     Dates: start: 201502, end: 201502
  3. FLUMAZENIL [Concomitant]
     Active Substance: FLUMAZENIL
     Indication: Somnolence
  4. PIPERACILLIN SODIUM\TAZOBACTAM SODIUM [Concomitant]
     Active Substance: PIPERACILLIN SODIUM\TAZOBACTAM SODIUM
     Indication: Pneumococcal infection
     Dosage: 4 G, 3X/DAY
     Route: 042
     Dates: start: 201502, end: 2015
  5. PIPERACILLIN SODIUM\TAZOBACTAM SODIUM [Concomitant]
     Active Substance: PIPERACILLIN SODIUM\TAZOBACTAM SODIUM
     Indication: Antifungal prophylaxis
  6. NOREPINEPHRINE [Concomitant]
     Active Substance: NOREPINEPHRINE
     Dosage: UNK
     Dates: start: 2015, end: 2015
  7. SULFAMETHOXAZOLE\TRIMETHOPRIM [Concomitant]
     Active Substance: SULFAMETHOXAZOLE\TRIMETHOPRIM
     Indication: Antifungal prophylaxis
     Dosage: 800 MG, QOD
     Route: 048
  8. BASILIXIMAB [Concomitant]
     Active Substance: BASILIXIMAB
     Indication: Prophylaxis against transplant rejection
     Dosage: UNK
     Dates: start: 20150303
  9. METHYLPREDNISOLONE HEMISUCCINATE [Concomitant]
     Active Substance: METHYLPREDNISOLONE HEMISUCCINATE
     Indication: Prophylaxis against transplant rejection
     Dosage: UNK
  10. TACROLIMUS [Concomitant]
     Active Substance: TACROLIMUS
     Indication: Prophylaxis against transplant rejection
     Dosage: UNK

REACTIONS (2)
  - Drug ineffective [Fatal]
  - Pathogen resistance [Unknown]

NARRATIVE: CASE EVENT DATE: 20150301
